FAERS Safety Report 16084939 (Version 1)
Quarter: 2019Q1

REPORT INFORMATION
  Report Type: Report from Study
  Country: CA (occurrence: CA)
  Receive Date: 20190318
  Receipt Date: 20190318
  Transmission Date: 20190418
  Serious: Yes (Hospitalization)
  Sender: FDA-Public Use
  Company Number: CA-JNJFOC-20190312400

PATIENT
  Age: 68 Year
  Sex: Female
  Weight: 74.5 kg

DRUGS (1)
  1. USTEKINUMAB [Suspect]
     Active Substance: USTEKINUMAB
     Indication: PSORIASIS
     Route: 058
     Dates: start: 201105

REACTIONS (1)
  - Abdominal wall abscess [Recovered/Resolved with Sequelae]

NARRATIVE: CASE EVENT DATE: 20181203
